FAERS Safety Report 8006884-2 (Version None)
Quarter: 2011Q4

REPORT INFORMATION
  Report Type: 
  Country: None (occurrence: None)
  Receive Date: 20111227
  Receipt Date: 20111216
  Transmission Date: 20120403
  Serious: Yes (Hospitalization, Other)
  Sender: FDA-Public Use
  Company Number: US-JNJFOC-20110404360

PATIENT
  Sex: Female
  Weight: 64.41 kg

DRUGS (4)
  1. ORTHO EVRA [Suspect]
     Indication: MOOD SWINGS
     Route: 062
     Dates: start: 20091101, end: 20091201
  2. ORTHO EVRA [Suspect]
     Indication: CONTRACEPTION
     Route: 062
     Dates: start: 20091101, end: 20091201
  3. ORTHO EVRA [Suspect]
     Indication: DYSMENORRHOEA
     Route: 062
     Dates: start: 20091101, end: 20091201
  4. ORTHO EVRA [Suspect]
     Indication: HORMONE THERAPY
     Route: 062
     Dates: start: 20091101, end: 20091201

REACTIONS (5)
  - MIGRAINE [None]
  - OFF LABEL USE [None]
  - PULMONARY EMBOLISM [None]
  - RIGHT VENTRICULAR FAILURE [None]
  - CARDIAC VALVE DISEASE [None]
